FAERS Safety Report 6694637-7 (Version None)
Quarter: 2010Q2

REPORT INFORMATION
  Report Type: 
  Country: None (occurrence: None)
  Receive Date: 20100421
  Receipt Date: 20100407
  Transmission Date: 20101027
  Serious: Yes (Congenital Anomaly)
  Sender: FDA-Public Use
  Company Number: 144-20484-10021180

PATIENT
  Sex: Female
  Weight: 3.86 kg

DRUGS (2)
  1. INNOHEP [Suspect]
     Indication: DRUG EXPOSURE DURING PREGNANCY
     Dosage: TRANSPLACENTAL UNTIL BIRTH
     Route: 064
     Dates: start: 20070531
  2. FOLIC ACID [Concomitant]

REACTIONS (3)
  - ATRIAL SEPTAL DEFECT [None]
  - MATERNAL DRUGS AFFECTING FOETUS [None]
  - VENTOUSE EXTRACTION [None]
